FAERS Safety Report 5836239-8 (Version None)
Quarter: 2008Q3

REPORT INFORMATION
  Report Type: 
  Country: None (occurrence: None)
  Receive Date: 20080806
  Receipt Date: 20080806
  Transmission Date: 20090109
  Serious: Yes (Other)
  Sender: FDA-Public Use
  Company Number: None

PATIENT
  Age: 33 Year
  Sex: Male

DRUGS (1)
  1. DURAGESIC-100 [Suspect]
     Dosage: CHANGE TO BRAND DURAGESIC 100MCG (10) ONE Q 72 HR TRANSDERMALLY #10 MONTH
     Route: 062

REACTIONS (2)
  - ERYTHEMA [None]
  - PRURITUS [None]
